FAERS Safety Report 25981533 (Version 1)
Quarter: 2025Q4

REPORT INFORMATION
  Report Type: Report from Study
  Country: CA (occurrence: CA)
  Receive Date: 20251030
  Receipt Date: 20251030
  Transmission Date: 20260118
  Serious: Yes (Other)
  Sender: ABBVIE
  Company Number: CA-ABBVIE-6518021

PATIENT
  Age: 54 Year
  Sex: Female

DRUGS (2)
  1. RINVOQ [Suspect]
     Active Substance: UPADACITINIB
     Indication: Rheumatoid arthritis
     Route: 048
  2. SUBOXONE [Suspect]
     Active Substance: BUPRENORPHINE HYDROCHLORIDE\NALOXONE HYDROCHLORIDE
     Indication: Pain
     Route: 065

REACTIONS (7)
  - Drug dependence [Unknown]
  - General physical health deterioration [Unknown]
  - Crohn^s disease [Unknown]
  - Fibromyalgia [Unknown]
  - Peripheral sensory neuropathy [Unknown]
  - Withdrawal syndrome [Unknown]
  - Osteoporosis [Unknown]
